FAERS Safety Report 4496584-8 (Version None)
Quarter: 2004Q4

REPORT INFORMATION
  Report Type: 
  Country: None (occurrence: None)
  Receive Date: 20041109
  Receipt Date: 20031219
  Transmission Date: 20050328
  Serious: Yes (Death)
  Sender: FDA-Public Use
  Company Number: 200311544JP

PATIENT
  Age: 64 Year
  Sex: Female
  Weight: 52 kg

DRUGS (10)
  1. ARAVA [Suspect]
     Indication: RHEUMATOID ARTHRITIS
     Route: 048
     Dates: start: 20030926, end: 20031217
  2. AZULFIDINE [Concomitant]
     Indication: RHEUMATOID ARTHRITIS
     Route: 048
     Dates: start: 20011101, end: 20030925
  3. PREDONINE [Concomitant]
     Indication: INFLAMMATION
     Route: 048
  4. VOLTAREN [Concomitant]
     Indication: PAIN
     Route: 048
  5. SELBEX [Concomitant]
     Indication: GASTRITIS
     Route: 048
  6. SELBEX [Concomitant]
     Indication: PROPHYLAXIS
     Route: 048
  7. BONALON [Concomitant]
     Indication: OSTEOPOROSIS
     Route: 048
  8. CALCITRIOL [Concomitant]
     Indication: OSTEOPOROSIS
     Route: 048
  9. ASPARA-CA [Concomitant]
     Indication: OSTEOPOROSIS
     Route: 048
  10. METHOTREXATE [Concomitant]
     Indication: RHEUMATOID ARTHRITIS
     Dates: start: 20020613, end: 20030711

REACTIONS (14)
  - ATELECTASIS [None]
  - BLOOD CREATINE PHOSPHOKINASE INCREASED [None]
  - BLOOD LACTATE DEHYDROGENASE DECREASED [None]
  - BLOOD PRESSURE DECREASED [None]
  - CHEST PAIN [None]
  - CHEST X-RAY ABNORMAL [None]
  - COUGH [None]
  - DYSPNOEA [None]
  - INTERSTITIAL LUNG DISEASE [None]
  - PNEUMOMEDIASTINUM [None]
  - PYREXIA [None]
  - SUBCUTANEOUS EMPHYSEMA [None]
  - URINE OUTPUT DECREASED [None]
  - WHITE BLOOD CELL COUNT INCREASED [None]
